FAERS Safety Report 7573935 (Version 5)
Quarter: 2012Q4

REPORT INFORMATION
  Report Type: 
  Country: US (occurrence: US)
  Receive Date: 20100907
  Receipt Date: 20121025
  Transmission Date: 20130627
  Serious: Yes (Hospitalization, Other)
  Sender: FDA-Public Use
  Company Number: US-BAYER-201032432NA

PATIENT
  Age: 48 Year
  Sex: Female
  Weight: 61 kg

DRUGS (3)
  1. YAZ [Suspect]
     Indication: ORAL CONTRACEPTION
     Dosage: UNK
     Dates: start: 20050429
  2. YAZ [Suspect]
     Indication: IRREGULAR MENSTRUATION
     Dosage: UNK
     Route: 048
     Dates: start: 20080226, end: 20080903
  3. YAZ [Suspect]
     Indication: HEAVY PERIODS

REACTIONS (2)
  - Pulmonary embolism [None]
  - Thrombosis [None]
